FAERS Safety Report 10158444 (Version 1)
Quarter: 2014Q2

REPORT INFORMATION
  Report Type: Report from Study
  Country: AR (occurrence: AR)
  Receive Date: 20140507
  Receipt Date: 20140507
  Transmission Date: 20141212
  Serious: Yes (Hospitalization)
  Sender: FDA-Public Use
  Company Number: PHHY2014AR055263

PATIENT
  Age: 71 Year
  Sex: Male

DRUGS (4)
  1. TRILEPTAL [Suspect]
     Indication: TREMOR
     Dosage: 2 DF, DAILY
     Route: 048
     Dates: start: 201301, end: 20131203
  2. TRILEPTAL [Suspect]
     Indication: BALANCE DISORDER
  3. ALDACTONE [Suspect]
     Indication: BLOOD POTASSIUM ABNORMAL
     Dosage: UNK UKN, UNK
     Dates: start: 201311
  4. VALCOTE [Suspect]
     Dosage: UNK UKN, UNK
     Dates: start: 20131203, end: 201401

REACTIONS (7)
  - Blood magnesium decreased [Recovered/Resolved]
  - Incontinence [Recovered/Resolved]
  - Blood potassium decreased [Recovered/Resolved]
  - Syncope [Recovered/Resolved]
  - Cardiac failure [Recovering/Resolving]
  - Blood sodium decreased [Recovered/Resolved]
  - Tremor [Recovered/Resolved]
